FAERS Safety Report 7620930-7 (Version None)
Quarter: 2011Q3

REPORT INFORMATION
  Report Type: 
  Country: None (occurrence: None)
  Receive Date: 20110719
  Receipt Date: 20110711
  Transmission Date: 20111222
  Serious: Yes (Disabling, Other)
  Sender: FDA-Public Use
  Company Number: CA-MERCK-1107USA01448

PATIENT
  Age: 81 Year
  Sex: Female
  Weight: 59 kg

DRUGS (5)
  1. AMLODIPINE [Concomitant]
     Route: 065
  2. FOSAMAX PLUS D [Suspect]
     Dosage: 70 MILLICURIES
     Route: 048
  3. FOSAMAX [Suspect]
     Route: 048
  4. CALCIUM CARBONATE [Concomitant]
     Route: 065
  5. VITALUX (ASCORBIC ACID (+) BETA CAROTENE (+) COPPER (UNSPECIFIED) (+) [Concomitant]
     Route: 065

REACTIONS (5)
  - PAIN IN EXTREMITY [None]
  - SENSATION OF HEAVINESS [None]
  - MOVEMENT DISORDER [None]
  - GAIT DISTURBANCE [None]
  - GROIN PAIN [None]
